FAERS Safety Report 25065165 (Version 1)
Quarter: 2025Q1

REPORT INFORMATION
  Report Type: Spontaneous
  Country: BA (occurrence: BA)
  Receive Date: 20250311
  Receipt Date: 20250311
  Transmission Date: 20250409
  Serious: Yes (Other)
  Sender: NOVARTIS
  Company Number: BA-002147023-NVSC2025BA038063

PATIENT
  Age: 48 Year
  Sex: Female

DRUGS (2)
  1. KISQALI [Suspect]
     Active Substance: RIBOCICLIB
     Indication: Product used for unknown indication
     Route: 065
     Dates: start: 201908
  2. LETROZOLE [Concomitant]
     Active Substance: LETROZOLE
     Indication: Product used for unknown indication
     Route: 065

REACTIONS (7)
  - Metastases to liver [Unknown]
  - Spinal pain [Unknown]
  - Hepatomegaly [Unknown]
  - Lacrimation increased [Unknown]
  - Pruritus [Unknown]
  - Hot flush [Unknown]
  - Pancreatic steatosis [Unknown]

NARRATIVE: CASE EVENT DATE: 20220101
